FAERS Safety Report 7568632-X (Version None)
Quarter: 2011Q2

REPORT INFORMATION
  Report Type: 
  Country: None (occurrence: None)
  Receive Date: 20110623
  Receipt Date: 20110609
  Transmission Date: 20111010
  Serious: Yes (Hospitalization)
  Sender: FDA-Public Use
  Company Number: PHHY2011TR50515

PATIENT
  Age: 7 Year
  Sex: Female

DRUGS (10)
  1. PREDNISOLONE [Suspect]
     Dosage: 5 MG, UNK
  2. IBUPROFEN [Suspect]
     Indication: JUVENILE ARTHRITIS
     Dosage: UNK
  3. METHYLPREDNISOLONE [Suspect]
     Dosage: 30 MG/KG, UNK
  4. CORTICOSTEROID NOS [Suspect]
     Indication: JUVENILE ARTHRITIS
     Dosage: 1 MG/KG, UNK
     Route: 048
  5. PREDNISOLONE [Suspect]
     Dosage: 2 MG/KG, UNK
     Route: 048
  6. CYCLOPHOSPHAMIDE [Suspect]
     Dosage: 2 MG/KG, UNK
     Route: 048
  7. CEFACLOR [Suspect]
     Indication: BRONCHITIS
     Dosage: UNK
  8. METHOTREXATE [Suspect]
     Dosage: 10 MG/M2, UNK
  9. COLCHICINE [Suspect]
     Dosage: 1 MG, UNK
  10. DAPSONE [Suspect]
     Dosage: 1 MG/KG, UNK

REACTIONS (16)
  - HAEMOLYTIC ANAEMIA [None]
  - JOINT SWELLING [None]
  - MALAISE [None]
  - BRONCHITIS [None]
  - LINEAR IGA DISEASE [None]
  - TENDERNESS [None]
  - BLISTER [None]
  - MOUTH ULCERATION [None]
  - DRUG RESISTANCE [None]
  - SYSTEMIC LUPUS ERYTHEMATOSUS [None]
  - AUTOIMMUNE THYROIDITIS [None]
  - FATIGUE [None]
  - DERMATITIS BULLOUS [None]
  - FEELING HOT [None]
  - THROMBOCYTOSIS [None]
  - URTICARIA [None]
